FAERS Safety Report 6735926-7 (Version None)
Quarter: 2010Q2

REPORT INFORMATION
  Report Type: 
  Country: None (occurrence: None)
  Receive Date: 20100521
  Receipt Date: 20100514
  Transmission Date: 20101027
  Serious: Yes (Hospitalization, Other)
  Sender: FDA-Public Use
  Company Number: B0642112A

PATIENT
  Sex: Female

DRUGS (4)
  1. ARIXTRA [Suspect]
     Indication: THROMBOSIS PROPHYLAXIS
     Dosage: 2.5MG PER DAY
     Route: 058
     Dates: start: 20100317, end: 20100317
  2. ALBUMIN (HUMAN) [Concomitant]
     Indication: PULMONARY OEDEMA
     Dosage: 50ML PER DAY
     Route: 042
  3. PENTAZOCINE [Concomitant]
     Indication: ANALGESIC THERAPY
     Dosage: 52MG PER DAY
     Dates: start: 20100317
  4. ATARAX [Concomitant]
     Indication: ANALGESIC THERAPY
     Dosage: 100MG PER DAY
     Dates: start: 20100317

REACTIONS (2)
  - DISSEMINATED INTRAVASCULAR COAGULATION [None]
  - INTRA-ABDOMINAL HAEMORRHAGE [None]
